FAERS Safety Report 17596954 (Version 1)
Quarter: 2020Q1

REPORT INFORMATION
  Report Type: Spontaneous
  Country: CA (occurrence: CA)
  Receive Date: 20200330
  Receipt Date: 20200330
  Transmission Date: 20200409
  Serious: Yes (Other)
  Sender: FDA-Public Use
  Company Number: CA-SA-2020SA068451

PATIENT
  Sex: Female

DRUGS (2)
  1. HYDROXYCHLOROQUINE [Suspect]
     Active Substance: HYDROXYCHLOROQUINE
     Dosage: 400 MG, QD
  2. LEFLUNOMIDE. [Suspect]
     Active Substance: LEFLUNOMIDE

REACTIONS (6)
  - Therapeutic product effect incomplete [Unknown]
  - Pain [Not Recovered/Not Resolved]
  - Drug intolerance [Unknown]
  - Off label use [Unknown]
  - Rheumatoid arthritis [Not Recovered/Not Resolved]
  - Treatment failure [Unknown]
